FAERS Safety Report 20176161 (Version 2)
Quarter: 2022Q1

REPORT INFORMATION
  Report Type: Spontaneous
  Country: FI (occurrence: FI)
  Receive Date: 20211213
  Receipt Date: 20220118
  Transmission Date: 20220423
  Serious: Yes (Hospitalization, Other)
  Sender: FDA-Public Use
  Company Number: FI-MYLANLABS-2021M1085802

PATIENT
  Age: 59 Year
  Sex: Female

DRUGS (26)
  1. ARIPIPRAZOLE [Suspect]
     Active Substance: ARIPIPRAZOLE
     Indication: Schizoaffective disorder
     Dosage: UNK
     Route: 065
  2. OLANZAPINE [Suspect]
     Active Substance: OLANZAPINE
     Indication: Schizoaffective disorder
     Dosage: 30 MILLIGRAM, QD
     Route: 065
  3. OLANZAPINE [Suspect]
     Active Substance: OLANZAPINE
     Dosage: 1 + 1 TABLETS DAILY
     Route: 065
     Dates: end: 20211026
  4. OLANZAPINE [Suspect]
     Active Substance: OLANZAPINE
     Dosage: 1 TABLET, EVERY EVENING DAILY
     Route: 065
     Dates: end: 20211028
  5. OLANZAPINE [Suspect]
     Active Substance: OLANZAPINE
     Dosage: 1 + 2 TABLETS DAILY
     Route: 065
     Dates: end: 20211018
  6. QUETIAPINE FUMARATE [Suspect]
     Active Substance: QUETIAPINE FUMARATE
     Indication: Schizoaffective disorder
     Dosage: UNK
     Route: 065
  7. CLOZAPINE [Suspect]
     Active Substance: CLOZAPINE
     Indication: Schizoaffective disorder
     Dosage: UNK
     Route: 065
  8. CLOZAPINE [Suspect]
     Active Substance: CLOZAPINE
     Dosage: START DOSE 25 MG EVERY EVENING, TITRATED UP TO 200 MG
     Route: 048
     Dates: end: 20211103
  9. CLOZAPINE [Suspect]
     Active Substance: CLOZAPINE
     Dosage: 200 MILLIGRAM, QD
     Route: 048
     Dates: end: 20211112
  10. CLOZAPINE [Suspect]
     Active Substance: CLOZAPINE
     Dosage: UNK
     Route: 065
  11. CLOZAPINE [Suspect]
     Active Substance: CLOZAPINE
     Dosage: 200 MILLIGRAM, QD
     Route: 065
     Dates: end: 202111
  12. OLANZAPINE [Suspect]
     Active Substance: OLANZAPINE
     Indication: Schizoaffective disorder
     Dosage: 1 DF, QD (EVERY EVENING)
     Dates: end: 20211028
  13. OLANZAPINE [Suspect]
     Active Substance: OLANZAPINE
     Dosage: 1 + 1 TABLETS DAILY
     Route: 065
     Dates: end: 20211026
  14. OLANZAPINE [Suspect]
     Active Substance: OLANZAPINE
     Dosage: 1 + 2 TABLETS DAILY
     Route: 065
     Dates: end: 20211026
  15. OLANZAPINE [Suspect]
     Active Substance: OLANZAPINE
     Dosage: 30 MG, QD
     Route: 065
  16. LITHIUM CARBONATE [Suspect]
     Active Substance: LITHIUM CARBONATE
     Indication: Schizoaffective disorder
     Dosage: 300 MG UNK
     Route: 065
  17. LITHIUM CARBONATE [Suspect]
     Active Substance: LITHIUM CARBONATE
     Dosage: 1 + 2 DOSES, DALIY
     Route: 065
     Dates: end: 20211109
  18. LITHIUM CARBONATE [Suspect]
     Active Substance: LITHIUM CARBONATE
     Dosage: 1 + 1.5 DOSES
     Route: 065
  19. ZUCLOPENTHIXOL ACETATE [Concomitant]
     Active Substance: ZUCLOPENTHIXOL ACETATE
     Indication: Insomnia
     Dosage: 10 MG
     Route: 065
     Dates: end: 20211026
  20. TENOX [Concomitant]
     Indication: Product used for unknown indication
     Dosage: 0.5 - 1 DOSES, ONCE A DAY WHEN NEEDED
     Route: 065
     Dates: end: 20210927
  21. TENOX [Concomitant]
     Dosage: 0.5 - 2 DOSES, ONCE A DAY WHEN NEEDED
     Route: 065
  22. METFORMIN HYDROCHLORIDE [Concomitant]
     Active Substance: METFORMIN HYDROCHLORIDE
     Indication: Product used for unknown indication
     Dosage: 500 MILLIGRAM, QD
     Route: 065
  23. TENOXICAM [Concomitant]
     Active Substance: TENOXICAM
     Indication: Product used for unknown indication
     Dosage: 20 MILLIGRAM 20 MG, ?-1X1, AS NEEDED
  24. TENOXICAM [Concomitant]
     Active Substance: TENOXICAM
     Dosage: 0.5 - 1 DOSES, ONCE A DAY WHEN NEEDED
     Route: 065
     Dates: end: 20210927
  25. TENOXICAM [Concomitant]
     Active Substance: TENOXICAM
     Dosage: 0.5 - 2 DOSES, ONCE A DAY WHEN NEEDED
     Route: 065
     Dates: end: 20210927
  26. TENOXICAM [Concomitant]
     Active Substance: TENOXICAM
     Dosage: 20 MILLIGRAM 20 MG, ?-2X1, AS NEEDED
     Dates: end: 20210928

REACTIONS (5)
  - White blood cell count increased [Unknown]
  - Eosinophilia [Unknown]
  - Delusion [Not Recovered/Not Resolved]
  - Insomnia [Not Recovered/Not Resolved]
  - Drug ineffective [Unknown]

NARRATIVE: CASE EVENT DATE: 19980101
